FAERS Safety Report 24382508 (Version 1)
Quarter: 2024Q4

REPORT INFORMATION
  Report Type: Spontaneous
  Country: IT (occurrence: IT)
  Receive Date: 20241001
  Receipt Date: 20241001
  Transmission Date: 20250114
  Serious: Yes (Hospitalization)
  Sender: BAXTER
  Company Number: None

PATIENT
  Age: 28 Year
  Sex: Male
  Weight: 85 kg

DRUGS (4)
  1. PROPOFOL [Suspect]
     Active Substance: PROPOFOL
     Dosage: 250 MG, UNSPECIFIED FREQUENCY
     Route: 065
     Dates: start: 20240905, end: 20240905
  2. MIDAZOLAM [Suspect]
     Active Substance: MIDAZOLAM
     Dosage: 1 MG, UNSPECIFIED FREQUENCY
     Route: 042
  3. AMOXICILLIN\CLAVULANIC ACID [Suspect]
     Active Substance: AMOXICILLIN\CLAVULANIC ACID
     Dosage: 2.2 G, UNSPECIFIED FREQUENCY
     Route: 042
     Dates: start: 20240905, end: 20240905
  4. FENTANYL [Suspect]
     Active Substance: FENTANYL
     Dosage: 100 UG, UNSPECIFIED FREQUENCY
     Route: 065

REACTIONS (2)
  - Hypersensitivity [Recovered/Resolved]
  - Erythema [Recovered/Resolved]

NARRATIVE: CASE EVENT DATE: 20240905
